FAERS Safety Report 5637226-5 (Version None)
Quarter: 2008Q1

REPORT INFORMATION
  Report Type: 
  Country: None (occurrence: None)
  Receive Date: 20080225
  Receipt Date: 20070718
  Transmission Date: 20080703
  Serious: Yes (Other)
  Sender: FDA-Public Use
  Company Number: US-BRISTOL-MYERS SQUIBB COMPANY-13532312

PATIENT
  Age: 20 Year
  Sex: Female

DRUGS (2)
  1. KENALOG [Suspect]
     Indication: PROPHYLAXIS
     Dates: start: 20060711
  2. VICODIN [Concomitant]

REACTIONS (2)
  - CUSHING'S SYNDROME [None]
  - PRURITUS [None]
